FAERS Safety Report 11312845 (Version 1)
Quarter: 2015Q3

REPORT INFORMATION
  Report Type: Spontaneous
  Country: US (occurrence: US)
  Receive Date: 20150727
  Receipt Date: 20150727
  Transmission Date: 20151125
  Serious: No
  Sender: FDA-Public Use
  Company Number: US-ABBVIE-15P-163-1346933-00

PATIENT
  Sex: Female

DRUGS (6)
  1. CAL MAG [Concomitant]
     Indication: MINERAL SUPPLEMENTATION
  2. VITAMIN D3 [Concomitant]
     Active Substance: CHOLECALCIFEROL
     Indication: VITAMIN SUPPLEMENTATION
  3. TURMERIC [Concomitant]
     Active Substance: TURMERIC
     Indication: VITAMIN SUPPLEMENTATION
  4. CAL MAG [Concomitant]
     Indication: MINERAL SUPPLEMENTATION
  5. OMEGA 3 [Concomitant]
     Active Substance: OMEGA-3 FATTY ACIDS
     Indication: VITAMIN SUPPLEMENTATION
  6. SYNTHROID [Suspect]
     Active Substance: LEVOTHYROXINE SODIUM
     Indication: HYPOTHYROIDISM
     Route: 065

REACTIONS (1)
  - Medication error [Not Recovered/Not Resolved]
